FAERS Safety Report 12470714 (Version 1)
Quarter: 2016Q2

REPORT INFORMATION
  Report Type: Spontaneous
  Country: US (occurrence: None)
  Receive Date: 20160615
  Receipt Date: 20160615
  Transmission Date: 20160815
  Serious: Yes (Other)
  Sender: FDA-Public Use
  Company Number: None

PATIENT
  Age: 69 Year
  Sex: Male
  Weight: 74.84 kg

DRUGS (14)
  1. CALCIUM [Concomitant]
     Active Substance: CALCIUM
  2. FLUOXETINE [Concomitant]
     Active Substance: FLUOXETINE HYDROCHLORIDE
  3. INSTAFLEX [Concomitant]
     Active Substance: DIETARY SUPPLEMENT
  4. MYRBETRIQ [Suspect]
     Active Substance: MIRABEGRON
     Indication: HYPERTONIC BLADDER
     Route: 048
     Dates: start: 20160424, end: 20160606
  5. ATORVASTATIN [Concomitant]
     Active Substance: ATORVASTATIN
  6. FISH OIL [Concomitant]
     Active Substance: FISH OIL
  7. ELMIRON [Concomitant]
     Active Substance: PENTOSAN POLYSULFATE SODIUM
  8. KRILL OIL [Concomitant]
     Active Substance: DIETARY SUPPLEMENT
  9. GARLIC. [Concomitant]
     Active Substance: GARLIC
  10. COQ10 [Concomitant]
     Active Substance: UBIDECARENONE
  11. FLUTICASONE [Concomitant]
     Active Substance: FLUTICASONE\FLUTICASONE PROPIONATE
  12. ALFUSOZIN [Concomitant]
     Active Substance: ALFUZOSIN
  13. VITAMIN D3 [Concomitant]
     Active Substance: CHOLECALCIFEROL
  14. PSYLLIUM FIBER KONSYL 1 TEASPOON [Concomitant]
     Active Substance: PSYLLIUM HUSK

REACTIONS (6)
  - Cardiac flutter [None]
  - Hypoaesthesia [None]
  - Cardiac fibrillation [None]
  - Blood pressure increased [None]
  - Tremor [None]
  - Syncope [None]

NARRATIVE: CASE EVENT DATE: 20160606
